FAERS Safety Report 8923532 (Version 1)
Quarter: 2012Q4

REPORT INFORMATION
  Report Type: 
  Country: DE (occurrence: GB)
  Receive Date: 20121123
  Receipt Date: 20121123
  Transmission Date: 20130627
  Serious: Yes (Other)
  Sender: FDA-Public Use
  Company Number: GB-BRISTOL-MYERS SQUIBB COMPANY-17132879

PATIENT
  Age: 26 Year
  Sex: Male
  Weight: 100 kg

DRUGS (1)
  1. ARIPIPRAZOLE [Suspect]
     Indication: PSYCHOTIC DISORDER
     Dosage: Also taken 20mg,30mg
     Dates: start: 200709

REACTIONS (2)
  - Erectile dysfunction [Not Recovered/Not Resolved]
  - Penis disorder [Not Recovered/Not Resolved]
